FAERS Safety Report 6430425-4 (Version None)
Quarter: 2009Q4

REPORT INFORMATION
  Report Type: 
  Country: None (occurrence: None)
  Receive Date: 20091104
  Receipt Date: 20091102
  Transmission Date: 20100525
  Serious: Yes (Death, Hospitalization, Other)
  Sender: FDA-Public Use
  Company Number: SP01355

PATIENT
  Age: 92 Year
  Sex: Male

DRUGS (16)
  1. PEPCID [Suspect]
     Indication: PROPHYLAXIS
     Dosage: 40 MG (20 MG, 2 IN 1 D), ORAL
     Route: 048
     Dates: start: 20030518, end: 20070522
  2. COLACE [Concomitant]
  3. ACETAMINOPHEN + HYDROCODONE BITARTRATE [Concomitant]
  4. ASPIRIN [Concomitant]
  5. CLAVULANATE POTASSIUM + TICARCILLIN DISODIUM [Concomitant]
  6. FENTANYL-100 [Concomitant]
  7. GLYBURIDE [Concomitant]
  8. HEPARIN [Concomitant]
  9. INSULIN [Concomitant]
  10. LISINOPRIL [Concomitant]
  11. MENADIONE [Concomitant]
  12. METOPROLOL TARTRATE [Concomitant]
  13. MIDAZOLAM HCL [Concomitant]
  14. PHYTONADIONE [Concomitant]
  15. VANCOMYCIN [Concomitant]
  16. ZOLPIDEM TARTRATE [Concomitant]

REACTIONS (7)
  - ACUTE MYOCARDIAL INFARCTION [None]
  - ACUTE RESPIRATORY FAILURE [None]
  - GENITOURINARY TRACT INFECTION [None]
  - MULTI-ORGAN FAILURE [None]
  - RENAL FAILURE [None]
  - SEPSIS [None]
  - TORSADE DE POINTES [None]
